FAERS Safety Report 16035358 (Version 1)
Quarter: 2019Q1

REPORT INFORMATION
  Report Type: Spontaneous
  Country: US (occurrence: US)
  Receive Date: 20190305
  Receipt Date: 20190305
  Transmission Date: 20190418
  Serious: No
  Sender: FDA-Public Use
  Company Number: US-SA-2019SA061231

PATIENT

DRUGS (3)
  1. NAPROXEN. [Suspect]
     Active Substance: NAPROXEN
     Dosage: UNK UNK, UNK
  2. AMBIEN [Suspect]
     Active Substance: ZOLPIDEM TARTRATE
  3. IODINE. [Suspect]
     Active Substance: IODINE
     Dosage: UNK UNK, UNK

REACTIONS (5)
  - Urticaria [Unknown]
  - Abdominal pain upper [Unknown]
  - Blood urine present [Unknown]
  - Somnambulism [Unknown]
  - Hypersensitivity [Unknown]
